FAERS Safety Report 4553738-X (Version None)
Quarter: 2004Q4

REPORT INFORMATION
  Report Type: 
  Country: None (occurrence: None)
  Receive Date: 20041227
  Receipt Date: 20041021
  Transmission Date: 20050328
  Serious: No
  Sender: FDA-Public Use
  Company Number: 04P-163-0278265-00

PATIENT
  Age: 78 Year
  Sex: Female
  Weight: 58.9676 kg

DRUGS (11)
  1. HUMIRA [Suspect]
     Indication: RHEUMATOID ARTHRITIS
     Dosage: 40 MG, 1 IN 2 WK, SUBCUTANEOUS
     Route: 058
     Dates: start: 20040701
  2. PREDNISONE [Concomitant]
  3. CELECOXIB [Concomitant]
  4. RISEDRONATE SODIUM [Concomitant]
  5. METHOTREXATE SODIUM [Concomitant]
  6. HYZAAR [Concomitant]
  7. AMLODIPINE BESYLATE [Concomitant]
  8. LABETALOL [Concomitant]
  9. ESTROGENS CONJUGATED [Concomitant]
  10. FOLIC ACID [Concomitant]
  11. CYANOCOBALAMIN [Concomitant]

REACTIONS (3)
  - FALL [None]
  - LACERATION [None]
  - PYREXIA [None]
